FAERS Safety Report 7025622-3 (Version None)
Quarter: 2010Q4

REPORT INFORMATION
  Report Type: 
  Country: None (occurrence: None)
  Receive Date: 20101003
  Receipt Date: 20100930
  Transmission Date: 20110411
  Serious: Yes (Hospitalization)
  Sender: FDA-Public Use
  Company Number: US-BRISTOL-MYERS SQUIBB COMPANY-15312218

PATIENT
  Age: 50 Year
  Sex: Female

DRUGS (8)
  1. ABILIFY [Suspect]
     Indication: BIPOLAR DISORDER
     Dosage: TAKING FOR SEVERAL YRS.
  2. DIFLUCAN [Suspect]
  3. LORAZEPAM [Concomitant]
  4. KLONOPIN [Concomitant]
  5. LITHIUM [Concomitant]
  6. AMBIEN [Concomitant]
  7. CLONIDINE [Concomitant]
  8. ESKALITH [Concomitant]

REACTIONS (1)
  - PULMONARY THROMBOSIS [None]
